FAERS Safety Report 5311105-5 (Version None)
Quarter: 2007Q2

REPORT INFORMATION
  Report Type: 
  Country: None (occurrence: None)
  Receive Date: 20070426
  Receipt Date: 20070426
  Transmission Date: 20071010
  Serious: No
  Sender: FDA-Public Use
  Company Number: None

PATIENT
  Sex: Male
  Weight: 74.8435 kg

DRUGS (2)
  1. PERCODAN [Suspect]
     Indication: INTERVERTEBRAL DISC DISORDER
     Dosage: 325/45 1 QD PRN PAIN
     Dates: start: 20060901
  2. PERCODAN [Suspect]
     Indication: OSTEOARTHRITIS
     Dosage: 325/45 1 QD PRN PAIN
     Dates: start: 20060901

REACTIONS (3)
  - PHARMACEUTICAL PRODUCT COMPLAINT [None]
  - PRURITUS [None]
  - SWELLING FACE [None]
